FAERS Safety Report 10004718 (Version 2)
Quarter: 2014Q2

REPORT INFORMATION
  Report Type: Spontaneous
  Country: US (occurrence: US)
  Receive Date: 20140312
  Receipt Date: 20140625
  Transmission Date: 20141212
  Serious: Yes (Hospitalization)
  Sender: FDA-Public Use
  Company Number: US-GLAXOSMITHKLINE-A1063571A

PATIENT
  Sex: Female

DRUGS (6)
  1. ADVAIR [Suspect]
     Indication: ASTHMA
     Dosage: 1PUFF TWICE PER DAY
     Route: 065
     Dates: start: 1999
  2. SINGULAIR [Concomitant]
  3. FOSAMAX [Concomitant]
  4. VITAMIN D3 [Concomitant]
  5. ADVIL [Concomitant]
  6. PAROXETINE [Concomitant]

REACTIONS (3)
  - Asthma [Not Recovered/Not Resolved]
  - Breast pain [Recovering/Resolving]
  - Drug ineffective [Unknown]
